APPROVED DRUG PRODUCT: CARBOPLATIN
Active Ingredient: CARBOPLATIN
Strength: 450MG/VIAL
Dosage Form/Route: INJECTABLE;INJECTION
Application: A091510 | Product #003
Applicant: NATCO PHARMA USA LLC
Approved: May 29, 2012 | RLD: No | RS: No | Type: DISCN